FAERS Safety Report 4283782-1 (Version None)
Quarter: 2004Q1

REPORT INFORMATION
  Report Type: 
  Country: None (occurrence: None)
  Receive Date: 20040121
  Receipt Date: 20030403
  Transmission Date: 20041129
  Serious: Yes (Life-Threatening, Hospitalization)
  Sender: FDA-Public Use
  Company Number: A03200300722

PATIENT
  Age: 54 Year
  Sex: Male

DRUGS (7)
  1. PLAVIX [Suspect]
     Indication: MYOCARDIAL INFARCTION
     Dosage: ORAL
     Route: 048
     Dates: start: 20030301
  2. PLAVIX [Suspect]
     Indication: PROPHYLAXIS
     Dosage: ORAL
     Route: 048
     Dates: start: 20030301
  3. ACETYLSALICYLIC ACID SRT [Concomitant]
  4. RABEPRAZOLE SODIUM [Concomitant]
  5. METOPROLOL [Concomitant]
  6. ATORVASTATIN [Concomitant]
  7. GLYCERYL TRINITRATE [Concomitant]

REACTIONS (2)
  - JAUNDICE [None]
  - THROMBOTIC THROMBOCYTOPENIC PURPURA [None]
